FAERS Safety Report 16157808 (Version 1)
Quarter: 2019Q2

REPORT INFORMATION
  Report Type: Spontaneous
  Country: US (occurrence: US)
  Receive Date: 20190404
  Receipt Date: 20190404
  Transmission Date: 20190711
  Serious: No
  Sender: FDA-Public Use
  Company Number: US-VERTEX PHARMACEUTICALS-2018-008549

PATIENT
  Age: 53 Year
  Sex: Male

DRUGS (2)
  1. CAYSTON [Suspect]
     Active Substance: AZTREONAM
     Indication: PRODUCT USED FOR UNKNOWN INDICATION
     Route: 065
  2. ORKAMBI [Suspect]
     Active Substance: IVACAFTOR\LUMACAFTOR
     Indication: CYSTIC FIBROSIS
     Dosage: 400/250 MG, BID
     Route: 048
     Dates: start: 20151021

REACTIONS (9)
  - Dizziness [Unknown]
  - Nausea [Unknown]
  - Fatigue [Unknown]
  - Asthenia [Unknown]
  - Cough [Unknown]
  - Tremor [Unknown]
  - Product dose omission [Unknown]
  - Malaise [Unknown]
  - Weight increased [Unknown]

NARRATIVE: CASE EVENT DATE: 2018
